FAERS Safety Report 5378463-7 (Version None)
Quarter: 2007Q3

REPORT INFORMATION
  Report Type: 
  Country: None (occurrence: None)
  Receive Date: 20070705
  Receipt Date: 20070628
  Transmission Date: 20080115
  Serious: Yes (Hospitalization, Other)
  Sender: FDA-Public Use
  Company Number: PL-AVENTIS-200713181EU

PATIENT
  Age: 68 Year
  Sex: Female

DRUGS (2)
  1. ENOXAPARIN SODIUM [Suspect]
     Route: 058
     Dates: start: 20060718, end: 20060806
  2. ENARENAL [Concomitant]
     Indication: HYPERTENSION
     Route: 048
     Dates: start: 19960101

REACTIONS (3)
  - DRY MOUTH [None]
  - HYPOAESTHESIA [None]
  - TREMOR [None]
